FAERS Safety Report 9246193 (Version 1)
Quarter: 2013Q2

REPORT INFORMATION
  Report Type: Report from Study
  Country: US (occurrence: US)
  Receive Date: 20130422
  Receipt Date: 20130422
  Transmission Date: 20140414
  Serious: Yes (Hospitalization, Other)
  Sender: FDA-Public Use
  Company Number: US-ABBOTT-13P-163-1066655-00

PATIENT
  Age: 78 Year
  Sex: Female
  Weight: 74.46 kg

DRUGS (3)
  1. HUMIRA [Suspect]
     Indication: RHEUMATOID ARTHRITIS
     Route: 058
     Dates: start: 200906
  2. BLOOD PRESSURE MEDICATION [Concomitant]
     Indication: HYPERTENSION
  3. BLOOD PRESSURE MEDICATION [Concomitant]

REACTIONS (6)
  - Balance disorder [Not Recovered/Not Resolved]
  - Vertigo [Recovered/Resolved]
  - Chest pain [Recovered/Resolved]
  - Headache [Recovered/Resolved]
  - Unevaluable event [Recovered/Resolved]
  - Blood pressure increased [Unknown]
